FAERS Safety Report 8391552-8 (Version None)
Quarter: 2012Q2

REPORT INFORMATION
  Report Type: 
  Country: None (occurrence: None)
  Receive Date: 20120529
  Receipt Date: 20120518
  Transmission Date: 20120825
  Serious: Yes (Hospitalization, Other)
  Sender: FDA-Public Use
  Company Number: IT-PFIZER INC-2012126036

PATIENT
  Age: 69 Year
  Sex: Female

DRUGS (8)
  1. ASPIRIN [Concomitant]
     Dosage: UNK
     Dates: start: 20120502, end: 20120506
  2. RAMIPRIL [Suspect]
     Indication: CARDIAC FAILURE
     Dosage: 5 MG, DAILY
     Route: 048
     Dates: start: 20120502, end: 20120506
  3. LASIX [Suspect]
     Indication: CARDIAC FAILURE
     Dosage: 50 MG, DAILY
     Route: 048
     Dates: start: 20120502
  4. LASITONE [Suspect]
     Indication: CARDIAC FAILURE
     Dosage: 1 DF (25 MG/ 37 MG), DAILY
     Route: 048
     Dates: start: 20120502, end: 20120506
  5. ATORVASTATIN CALCIUM [Concomitant]
     Dosage: UNK
     Dates: start: 20120502, end: 20120506
  6. VALSARTAN [Suspect]
     Indication: CARDIAC FAILURE
     Dosage: 40 MG, DAILY
     Route: 048
     Dates: start: 20120502
  7. PLAVIX [Concomitant]
     Dosage: UNK
     Dates: start: 20120502, end: 20120506
  8. BISOPROLOL [Concomitant]
     Dosage: UNK
     Dates: start: 20120502, end: 20120506

REACTIONS (5)
  - CHEST PAIN [None]
  - RENAL FAILURE [None]
  - NASOPHARYNGITIS [None]
  - DRY MOUTH [None]
  - TREMOR [None]
